FAERS Safety Report 6188039-X (Version None)
Quarter: 2009Q2

REPORT INFORMATION
  Report Type: 
  Country: None (occurrence: None)
  Receive Date: 20090513
  Receipt Date: 20090511
  Transmission Date: 20091009
  Serious: Yes (Other)
  Sender: FDA-Public Use
  Company Number: PHHY2009GR17881

PATIENT
  Age: 87 Year
  Sex: Female

DRUGS (1)
  1. TEGRETOL [Suspect]
     Indication: TRIGEMINAL NEURALGIA
     Dosage: 200 MG, TID
     Dates: start: 19920101

REACTIONS (5)
  - ATAXIA [None]
  - BALANCE DISORDER [None]
  - BRADYCARDIA [None]
  - DIPLOPIA [None]
  - SOMNOLENCE [None]
